FAERS Safety Report 20257756 (Version 6)
Quarter: 2023Q2

REPORT INFORMATION
  Report Type: Report from Study
  Country: CA (occurrence: CA)
  Receive Date: 20211230
  Receipt Date: 20230524
  Transmission Date: 20230722
  Serious: Yes (Other)
  Sender: FDA-Public Use
  Company Number: CA-PFIZER INC-202101850229

PATIENT
  Age: 54 Year
  Sex: Female

DRUGS (12)
  1. METHOTREXATE SODIUM [Suspect]
     Active Substance: METHOTREXATE SODIUM
     Dosage: UNK, 1 EVERY 1 WEEK
     Route: 058
  2. METHOTREXATE SODIUM [Suspect]
     Active Substance: METHOTREXATE SODIUM
     Dosage: 1 DF 1 EVERY 1 WEEK
     Route: 058
  3. DICLOFENAC [Suspect]
     Active Substance: DICLOFENAC
     Dosage: 1 DF, 2 EVERY 1 DAYS
     Route: 048
  4. FOLIC ACID [Suspect]
     Active Substance: FOLIC ACID
     Dosage: 1 DF, 1 EVERY 1 DAYS
     Route: 048
  5. FOLIC ACID [Suspect]
     Active Substance: FOLIC ACID
     Dosage: 5 MG, 1 EVERY 1 DAYS
     Route: 048
  6. PANTOPRAZOLE [Suspect]
     Active Substance: PANTOPRAZOLE
     Dosage: 1 DF, 1 EVERY 1 DAYS
     Route: 048
  7. PANTOPRAZOLE [Suspect]
     Active Substance: PANTOPRAZOLE
     Dosage: 40 MG
     Route: 048
  8. BUPROPION [Concomitant]
     Active Substance: BUPROPION
     Route: 065
  9. LEVOTHYROXINE SODIUM [Concomitant]
     Active Substance: LEVOTHYROXINE SODIUM
     Dosage: 1 DF, 1 EVERY 1 DAYS
     Route: 048
  10. LORAZEPAM [Concomitant]
     Active Substance: LORAZEPAM
     Dosage: 1 DF, 2 EVERY 1 DAYS
     Route: 048
  11. METFORMIN [Concomitant]
     Active Substance: METFORMIN HYDROCHLORIDE
     Dosage: 1 DF, 2 EVERY 1 DAYS
     Route: 048
  12. VENLAFAXINE HYDROCHLORIDE [Concomitant]
     Active Substance: VENLAFAXINE HYDROCHLORIDE
     Route: 065

REACTIONS (8)
  - Erythema induratum [Recovered/Resolved]
  - Pruritus [Recovered/Resolved]
  - Tuberculin test positive [Recovered/Resolved]
  - Tuberculosis [Recovered/Resolved]
  - Hypersensitivity [Recovered/Resolved]
  - Infection [Recovered/Resolved]
  - Depression [Recovered/Resolved]
  - Off label use [Recovered/Resolved]
